FAERS Safety Report 16523249 (Version 1)
Quarter: 2019Q3

REPORT INFORMATION
  Report Type: Spontaneous
  Country: US (occurrence: US)
  Receive Date: 20190703
  Receipt Date: 20190703
  Transmission Date: 20191004
  Serious: Yes (Life-Threatening, Other)
  Sender: FDA-Public Use
  Company Number: US-GLENMARK PHARMACEUTICALS-2019GMK041958

PATIENT
  Age: 52 Year
  Sex: Female
  Weight: 55 kg

DRUGS (13)
  1. CARBIDOPA AND LEVODOPA [Suspect]
     Active Substance: CARBIDOPA\LEVODOPA
     Dosage: 2 DF, OD (TWO CARBIDOPA/ LEVODOPA PER DAY)
     Route: 065
  2. LEVODOPA [Suspect]
     Active Substance: LEVODOPA
     Dosage: 500 MG, OD
     Route: 065
  3. ROPINIROLE HYDROCHLORIDE. [Suspect]
     Active Substance: ROPINIROLE HYDROCHLORIDE
     Dosage: 8 MG, OD
     Route: 065
  4. CARBIDOPA AND LEVODOPA [Suspect]
     Active Substance: CARBIDOPA\LEVODOPA
     Dosage: 3 DF, OD (CARBIDOPA/LEVODOPA 25/100, 3 TABLETS DAILY)
     Route: 065
  5. ROTIGOTINE [Suspect]
     Active Substance: ROTIGOTINE
     Indication: PARKINSONISM
     Dosage: 4 MG, UNK
     Route: 062
  6. ROTIGOTINE [Suspect]
     Active Substance: ROTIGOTINE
     Dosage: 8 MG, UNK
     Route: 062
  7. ROPINIROLE HYDROCHLORIDE. [Suspect]
     Active Substance: ROPINIROLE HYDROCHLORIDE
     Indication: PARKINSONISM
     Dosage: 16 MG, OD
     Route: 065
  8. ROPINIROLE HYDROCHLORIDE. [Suspect]
     Active Substance: ROPINIROLE HYDROCHLORIDE
     Dosage: UNK (ROPINIROLE XL )
     Route: 065
  9. CLONAZEPAM. [Suspect]
     Active Substance: CLONAZEPAM
     Indication: PRODUCT USED FOR UNKNOWN INDICATION
     Dosage: 1 MG, OD (AT BEDTIME)
     Route: 065
  10. LEVODOPA [Suspect]
     Active Substance: LEVODOPA
     Dosage: UNK (MUCH GREATER FREQUENCY)
     Route: 065
  11. LEVODOPA [Suspect]
     Active Substance: LEVODOPA
     Indication: PARKINSONISM
     Dosage: 800 MG, OD
     Route: 065
  12. ESCITALOPRAM [Concomitant]
     Active Substance: ESCITALOPRAM OXALATE
     Indication: ANXIETY
     Dosage: UNK
     Route: 065
  13. CARBIDOPA AND LEVODOPA [Suspect]
     Active Substance: CARBIDOPA\LEVODOPA
     Indication: PARKINSONISM
     Dosage: UNK, OD (INCREASED DOSES OF CARBIDOPA/LEVODOPA, NOW 7-10 TABLETS DAILY)
     Route: 065

REACTIONS (13)
  - Chest pain [Recovering/Resolving]
  - Abdominal distension [Recovering/Resolving]
  - Weight increased [Unknown]
  - Nausea [Recovering/Resolving]
  - Drug ineffective [Unknown]
  - Anxiety [Recovering/Resolving]
  - Panic attack [Recovering/Resolving]
  - Dopamine dysregulation syndrome [Recovering/Resolving]
  - Hypotension [Recovering/Resolving]
  - Drug abuse [Recovering/Resolving]
  - Therapeutic response shortened [Unknown]
  - Withdrawal syndrome [Recovering/Resolving]
  - Weight decreased [Unknown]
